FAERS Safety Report 7119225-X (Version None)
Quarter: 2010Q4

REPORT INFORMATION
  Report Type: 
  Country: None (occurrence: None)
  Receive Date: 20101123
  Receipt Date: 20101116
  Transmission Date: 20110411
  Serious: Yes (Disabling)
  Sender: FDA-Public Use
  Company Number: CA-BAYER-201041750NA

PATIENT
  Sex: Female

DRUGS (1)
  1. AVELOX [Suspect]
     Indication: PHARYNGITIS

REACTIONS (7)
  - ABASIA [None]
  - ASTHENIA [None]
  - DIZZINESS [None]
  - HEADACHE [None]
  - MYALGIA [None]
  - OROPHARYNGEAL PAIN [None]
  - TENDON PAIN [None]
